FAERS Safety Report 12203787 (Version 1)
Quarter: 2016Q1

REPORT INFORMATION
  Report Type: Spontaneous
  Country: US (occurrence: None)
  Receive Date: 20160322
  Receipt Date: 20160322
  Transmission Date: 20160526
  Serious: No
  Sender: FDA-Public Use
  Company Number: None

PATIENT
  Sex: Female

DRUGS (1)
  1. NINLARO [Suspect]
     Active Substance: IXAZOMIB
     Dosage: ONCE WEEKLY FOR 3 WEEKS, 1 WEEK OFF
     Route: 048
     Dates: start: 20160223

REACTIONS (5)
  - Pyrexia [None]
  - Headache [None]
  - Hypersensitivity [None]
  - Rash [None]
  - Vomiting [None]
